FAERS Safety Report 18607292 (Version 2)
Quarter: 2020Q4

REPORT INFORMATION
  Report Type: Spontaneous
  Country: US (occurrence: US)
  Receive Date: 20201211
  Receipt Date: 20201223
  Transmission Date: 20210114
  Serious: Yes (Other)
  Sender: FDA-Public Use
  Company Number: US-BAYER-2020-268880

PATIENT
  Sex: Male
  Weight: 263 kg

DRUGS (4)
  1. HEMLIBRA [Concomitant]
     Active Substance: EMICIZUMAB-KXWH
     Dosage: UNK
  2. KOGENATE FS [Suspect]
     Active Substance: ANTIHEMOPHILIC FACTOR, HUMAN RECOMBINANT
     Indication: FACTOR VIII DEFICIENCY
     Dosage: 3000 U, ONCE; 1 DF (TREATMENT)
     Route: 042
  3. KOGENATE FS [Suspect]
     Active Substance: ANTIHEMOPHILIC FACTOR, HUMAN RECOMBINANT
     Indication: FACTOR VIII DEFICIENCY
     Dosage: 6000 U (+/-10%); EVERY12-24H AS NEEDED FOR TRAUMA OR BLEEDING WHILE ON HEMLIBRA THERAPY (PROPHYLAXIS
     Route: 042
     Dates: start: 20130329
  4. KOGENATE FS [Suspect]
     Active Substance: ANTIHEMOPHILIC FACTOR, HUMAN RECOMBINANT
     Indication: FACTOR VIII DEFICIENCY
     Dosage: 6000 U (+/-10%); EVERY12-24H AS NEEDED FOR TRAUMA OR BLEEDING WHILE ON HEMLIBRA THERAPY (PROPHYLAXIS
     Route: 042

REACTIONS (2)
  - Arthropathy [None]
  - Haemarthrosis [Unknown]
